FAERS Safety Report 10756017 (Version 1)
Quarter: 2015Q1

REPORT INFORMATION
  Report Type: Spontaneous
  Country: BR (occurrence: BR)
  Receive Date: 20150202
  Receipt Date: 20150202
  Transmission Date: 20150721
  Serious: Yes (Other)
  Sender: FDA-Public Use
  Company Number: BR-MYLANLABS-2015M1002477

PATIENT

DRUGS (4)
  1. PHENYTOIN. [Suspect]
     Active Substance: PHENYTOIN
     Indication: EPILEPSY
     Dosage: 100MG; 2 DOSES 12/12 HOURS FOR 1 MONTH
     Route: 048
  2. LAMOTRIGINE. [Interacting]
     Active Substance: LAMOTRIGINE
     Indication: EPILEPSY
     Dosage: 100MG; 12/12 HOURS FOR 9 MONTHS
     Route: 065
  3. VALPROATE [Interacting]
     Active Substance: VALPROATE SODIUM
     Indication: EPILEPSY
     Dosage: 300MG IN THE MORNING FOR 9 MONTHS
     Route: 065
  4. VALPROATE [Interacting]
     Active Substance: VALPROATE SODIUM
     Dosage: 900MG AT NIGHT FOR 9 MONTHS
     Route: 065

REACTIONS (7)
  - Cerebellar syndrome [Recovered/Resolved]
  - Toxicity to various agents [Recovered/Resolved]
  - Drug interaction [Recovered/Resolved]
  - Diplopia [Recovered/Resolved]
  - Ataxia [Recovered/Resolved]
  - Nystagmus [Recovered/Resolved]
  - Cerebral disorder [Recovered/Resolved]
